FAERS Safety Report 9993617 (Version 2)
Quarter: 2014Q2

REPORT INFORMATION
  Report Type: Spontaneous
  Country: US (occurrence: US)
  Receive Date: 20140310
  Receipt Date: 20140410
  Transmission Date: 20141212
  Serious: No
  Sender: FDA-Public Use
  Company Number: US-009507513-1403USA003499

PATIENT
  Age: 33 Year
  Sex: Female
  Weight: 71.66 kg

DRUGS (3)
  1. NUVARING [Suspect]
     Indication: CONTRACEPTION
     Dosage: 3 WEK IN ONE WEEK RING FREE BREAK
     Route: 067
     Dates: start: 201307
  2. ASCORBIC ACID [Concomitant]
  3. VITAMINS (UNSPECIFIED) [Concomitant]

REACTIONS (1)
  - Metrorrhagia [Unknown]
